FAERS Safety Report 8905303 (Version 2)
Quarter: 2015Q3

REPORT INFORMATION
  Report Type: Spontaneous
  Country: US (occurrence: US)
  Receive Date: 20121112
  Receipt Date: 20150717
  Transmission Date: 20151125
  Serious: Yes (Death, Other)
  Sender: FDA-Public Use
  Company Number: US-SANOFI-AVENTIS-2012SA082486

PATIENT
  Age: 63 Year
  Sex: Male

DRUGS (4)
  1. COUMADIN [Concomitant]
     Active Substance: WARFARIN SODIUM
     Dates: start: 20050813
  2. PROTONIX [Concomitant]
     Active Substance: PANTOPRAZOLE SODIUM
     Dosage: EVERY MORNING
     Route: 048
     Dates: start: 20050813
  3. PLAVIX [Suspect]
     Active Substance: CLOPIDOGREL BISULFATE
     Indication: CARDIAC PACEMAKER INSERTION
     Route: 065
     Dates: start: 20050813, end: 20051115
  4. ASPIRIN. [Concomitant]
     Active Substance: ASPIRIN
     Dates: start: 20050812, end: 20051115

REACTIONS (3)
  - Cerebral haemorrhage [Unknown]
  - Death [Fatal]
  - Ulcer haemorrhage [Unknown]

NARRATIVE: CASE EVENT DATE: 20051114
